FAERS Safety Report 20500677 (Version 1)
Quarter: 2022Q1

REPORT INFORMATION
  Report Type: Spontaneous
  Country: US (occurrence: US)
  Receive Date: 20220222
  Receipt Date: 20220222
  Transmission Date: 20220423
  Serious: No
  Sender: FDA-Public Use
  Company Number: US-SANOFI-00217449

PATIENT
  Age: 79 Year
  Sex: Male

DRUGS (4)
  1. DUPILUMAB [Suspect]
     Active Substance: DUPILUMAB
     Indication: Prurigo
     Dosage: 600 MG, 1X
     Route: 058
     Dates: start: 20200727, end: 20200727
  2. DUPILUMAB [Suspect]
     Active Substance: DUPILUMAB
     Indication: Asthma
     Dosage: 300 MG, QOW
     Route: 058
     Dates: start: 2020, end: 20210108
  3. DUPILUMAB [Suspect]
     Active Substance: DUPILUMAB
     Dosage: 300 MG, QOW
     Route: 058
     Dates: start: 2021
  4. TAMIFLU [Concomitant]
     Active Substance: OSELTAMIVIR PHOSPHATE

REACTIONS (9)
  - Symptom recurrence [Unknown]
  - Ocular hyperaemia [Unknown]
  - Eye pruritus [Unknown]
  - Fall [Not Recovered/Not Resolved]
  - Bone contusion [Not Recovered/Not Resolved]
  - Cough [Not Recovered/Not Resolved]
  - Influenza [Not Recovered/Not Resolved]
  - Back injury [Not Recovered/Not Resolved]
  - Therapeutic response decreased [Unknown]

NARRATIVE: CASE EVENT DATE: 20200101
